FAERS Safety Report 19519936 (Version 1)
Quarter: 2021Q3

REPORT INFORMATION
  Report Type: Spontaneous
  Country: IT (occurrence: IT)
  Receive Date: 20210712
  Receipt Date: 20210712
  Transmission Date: 20211014
  Serious: Yes (Hospitalization)
  Sender: FDA-Public Use
  Company Number: IT-JUBILANT CADISTA PHARMACEUTICALS-2021JUB00195

PATIENT
  Age: 50 Year
  Sex: Female

DRUGS (5)
  1. METHIMAZOLE. [Concomitant]
     Active Substance: METHIMAZOLE
     Dosage: 5 MG, 1X/DAY
  2. METHYLPREDNISOLONE. [Suspect]
     Active Substance: METHYLPREDNISOLONE
     Indication: ENDOCRINE OPHTHALMOPATHY
     Dosage: 500 MG, 1X/WEEK, IN 250 ML SALINE OVER A PERIOD OF 60?90 MINUTES FOR THE FIRST SIX INFUSIONS
     Route: 042
  3. METHYLPREDNISOLONE. [Suspect]
     Active Substance: METHYLPREDNISOLONE
     Dosage: 250 MG, 1X/WEEK, FOR THE LAST 6 INFUSIONS
     Route: 042
  4. PREDNISONE. [Concomitant]
     Active Substance: PREDNISONE
     Dosage: 10 MG/DIE IN THE INTERPULSE PERIOD
     Route: 048
  5. METHIMAZOLE. [Concomitant]
     Active Substance: METHIMAZOLE
     Dosage: 20 MG, 1X/DAY
     Route: 065

REACTIONS (1)
  - Drug-induced liver injury [Recovered/Resolved]
